FAERS Safety Report 6106046-X (Version None)
Quarter: 2009Q1

REPORT INFORMATION
  Report Type: 
  Country: None (occurrence: None)
  Receive Date: 20090227
  Receipt Date: 20080325
  Transmission Date: 20090719
  Serious: Yes (Other)
  Sender: FDA-Public Use
  Company Number: 169227USA

PATIENT
  Age: 62 Year
  Sex: Male

DRUGS (1)
  1. PROPOFOL [Suspect]
     Indication: ANAESTHESIA
     Dosage: (20 MG) INTRAVENOUS
     Route: 042
     Dates: start: 20080228

REACTIONS (1)
  - TONIC CLONIC MOVEMENTS [None]
